FAERS Safety Report 14117877 (Version 2)
Quarter: 2017Q4

REPORT INFORMATION
  Report Type: Other
  Country: SE (occurrence: SE)
  Receive Date: 20171023
  Receipt Date: 20171107
  Transmission Date: 20180321
  Serious: Yes (Other)
  Sender: FDA-Public Use
  Company Number: SE-TAKEDA-2017TUS021741

PATIENT
  Age: 73 Year
  Sex: Male

DRUGS (2)
  1. ENTYVIO [Suspect]
     Active Substance: VEDOLIZUMAB
     Indication: CROHN^S DISEASE
     Dosage: 300 MG, UNK
     Route: 042
     Dates: start: 20150917
  2. METHOTREXATE. [Concomitant]
     Active Substance: METHOTREXATE
     Dosage: UNK
     Dates: start: 20140908

REACTIONS (2)
  - Crohn^s disease [Unknown]
  - Gastroenteritis Escherichia coli [Unknown]

NARRATIVE: CASE EVENT DATE: 20170928
